FAERS Safety Report 15275751 (Version 4)
Quarter: 2021Q3

REPORT INFORMATION
  Report Type: Spontaneous
  Country: US (occurrence: US)
  Receive Date: 20180814
  Receipt Date: 20210910
  Transmission Date: 20211014
  Serious: No
  Sender: FDA-Public Use
  Company Number: US-CELLTRION INC.-2018US019959

PATIENT

DRUGS (1)
  1. INFLECTRA [Suspect]
     Active Substance: INFLIXIMAB-DYYB
     Indication: CHORIORETINITIS
     Dosage: UNK
     Route: 065
     Dates: start: 201806

REACTIONS (2)
  - Off label use [Unknown]
  - Product dose omission issue [Unknown]
